FAERS Safety Report 5747616-8 (Version None)
Quarter: 2008Q2

REPORT INFORMATION
  Report Type: 
  Country: None (occurrence: None)
  Receive Date: 20080523
  Receipt Date: 20080519
  Transmission Date: 20081010
  Serious: Yes (Hospitalization, Other)
  Sender: FDA-Public Use
  Company Number: US-ASTRAZENECA-2006UW22653

PATIENT
  Age: 17973 Day
  Sex: Female
  Weight: 104.5 kg

DRUGS (4)
  1. SEROQUEL [Suspect]
     Indication: SCHIZOPHRENIA
     Route: 048
     Dates: start: 20050101, end: 20060101
  2. SEROQUEL [Suspect]
     Indication: DEPRESSION
     Route: 048
     Dates: start: 20050101, end: 20060101
  3. GEODON [Concomitant]
     Dates: start: 20060101
  4. ZYPREXA [Concomitant]
     Dates: start: 20050101, end: 20060101

REACTIONS (4)
  - DIABETES MELLITUS [None]
  - DIABETIC COMPLICATION [None]
  - EYE DISORDER [None]
  - PNEUMONIA [None]
